FAERS Safety Report 15257583 (Version 1)
Quarter: 2018Q3

REPORT INFORMATION
  Report Type: Spontaneous
  Country: DE (occurrence: DE)
  Receive Date: 20180808
  Receipt Date: 20180808
  Transmission Date: 20181010
  Serious: Yes (Hospitalization, Other)
  Sender: FDA-Public Use
  Company Number: DE-ALLERGAN-1838832US

PATIENT
  Age: 28 Year
  Sex: Male
  Weight: 52 kg

DRUGS (22)
  1. AZATHIOPRINE. [Suspect]
     Active Substance: AZATHIOPRINE
     Dosage: UNK
     Route: 065
  2. AZATHIOPRINE. [Suspect]
     Active Substance: AZATHIOPRINE
     Indication: CROHN^S DISEASE
     Dosage: 100 MG, UNK
     Route: 065
  3. VITA B12 [Concomitant]
     Dosage: UNK
     Route: 065
  4. SALOFALK GR [Concomitant]
     Indication: CROHN^S DISEASE
     Dosage: 6 G, QD
     Route: 065
     Dates: start: 20160203
  5. SALOFALK GR [Concomitant]
     Dosage: 1000 MG, QD
     Route: 065
  6. REMICADE [Suspect]
     Active Substance: INFLIXIMAB
     Dosage: 300 MG, SINGLE (EVERY 6 WEEK)
     Route: 042
     Dates: start: 20160211
  7. REMICADE [Suspect]
     Active Substance: INFLIXIMAB
     Dosage: 300 MG, SINGLE
     Route: 042
  8. REMICADE [Suspect]
     Active Substance: INFLIXIMAB
     Dosage: UNK UNK, SINGLE
     Route: 042
  9. PREDNISOLONE. [Suspect]
     Active Substance: PREDNISOLONE
     Indication: PYLORIC STENOSIS
     Dosage: UNK
     Route: 065
  10. PANTOZOL [Concomitant]
     Active Substance: PANTOPRAZOLE SODIUM
     Dosage: UNK
     Route: 065
  11. FOLSAN [Concomitant]
     Active Substance: FOLIC ACID
     Indication: FOLATE DEFICIENCY
     Dosage: 5 MG, UNK
     Route: 065
  12. DEKRISTOL [Concomitant]
     Active Substance: CHOLECALCIFEROL
     Indication: CROHN^S DISEASE
     Dosage: 20000 IU, Q WEEK
     Route: 065
     Dates: start: 2016
  13. BUDENOFALK [Suspect]
     Active Substance: BUDESONIDE
     Indication: PYLORIC STENOSIS
     Dosage: UNK
     Route: 065
  14. VITA B12 [Concomitant]
     Indication: VITAMIN B12 DEFICIENCY
     Dosage: UNK, Q MONTH
     Route: 065
     Dates: start: 20160401
  15. VITA B12 [Concomitant]
     Dosage: 1000 G, Q MONTH (4 WEEK)
     Route: 065
  16. VITAMIN D3 [Concomitant]
     Active Substance: CHOLECALCIFEROL
     Indication: PRODUCT USED FOR UNKNOWN INDICATION
     Dosage: 1 DF, Q WEEK
     Route: 065
  17. REMICADE [Suspect]
     Active Substance: INFLIXIMAB
     Indication: CROHN^S DISEASE
     Dosage: 300 MG, SINGLE (8 WEEK)
     Route: 042
     Dates: start: 201608
  18. PANTOZOL [Concomitant]
     Active Substance: PANTOPRAZOLE SODIUM
     Indication: GASTROINTESTINAL DISORDER THERAPY
     Dosage: 80 MG, QD
     Route: 065
     Dates: start: 20160203
  19. NOVALGIN (METAMIZOLE SODIUM) [Concomitant]
     Active Substance: METAMIZOLE SODIUM
     Indication: PAIN
     Dosage: 30 GTT, UNK
     Route: 065
  20. PANTOZOL [Concomitant]
     Active Substance: PANTOPRAZOLE SODIUM
     Indication: PROPHYLAXIS
     Dosage: 80 MG, QD
     Route: 065
     Dates: start: 20171202
  21. PANTOZOL [Concomitant]
     Active Substance: PANTOPRAZOLE SODIUM
     Indication: ABDOMINAL PAIN
     Dosage: 1 DF, UNK
     Route: 065
  22. MESALAZINE UNK [Suspect]
     Active Substance: MESALAMINE
     Indication: PYLORIC STENOSIS
     Dosage: UNK
     Route: 065

REACTIONS (11)
  - Crohn^s disease [Not Recovered/Not Resolved]
  - Off label use [Unknown]
  - Gastrointestinal stoma complication [Unknown]
  - Gastrooesophageal sphincter insufficiency [Unknown]
  - General physical health deterioration [Recovered/Resolved]
  - Iron deficiency [Unknown]
  - Pyloric stenosis [Unknown]
  - Product use issue [Unknown]
  - Pancreatitis acute [Recovered/Resolved]
  - Drug ineffective [Unknown]
  - Depression [Recovered/Resolved]

NARRATIVE: CASE EVENT DATE: 201602
